FAERS Safety Report 8781783 (Version 2)
Quarter: 2012Q4

REPORT INFORMATION
  Report Type: 
  Country: US (occurrence: US)
  Receive Date: 20120913
  Receipt Date: 20121109
  Transmission Date: 20130627
  Serious: No
  Sender: FDA-Public Use
  Company Number: US-009507513-1208USA012485

PATIENT
  Sex: Female

DRUGS (2)
  1. AZASITE [Suspect]
     Indication: CONJUNCTIVITIS
     Dosage: 1 Gtt, bid
     Route: 047
     Dates: start: 20111028, end: 20120904
  2. AZASITE [Suspect]
     Indication: MEIBOMIANITIS

REACTIONS (3)
  - Pruritus [Not Recovered/Not Resolved]
  - Drug dose omission [Unknown]
  - Product quality issue [Unknown]
